FAERS Safety Report 9643286 (Version 1)
Quarter: 2013Q4

REPORT INFORMATION
  Report Type: Spontaneous
  Country: MX (occurrence: MX)
  Receive Date: 20131024
  Receipt Date: 20131024
  Transmission Date: 20140711
  Serious: Yes (Death, Hospitalization)
  Sender: FDA-Public Use
  Company Number: MX-ACTELION-A-CH2013-90184

PATIENT
  Age: 50 Year
  Sex: Female
  Weight: 62 kg

DRUGS (6)
  1. TRACLEER [Suspect]
     Indication: PULMONARY ARTERIAL HYPERTENSION
     Dosage: 125 MG, BID
     Route: 048
     Dates: start: 20120114, end: 20120503
  2. SALMETEROL [Concomitant]
  3. FLUTICASONE [Concomitant]
  4. TIOTROPIUM BROMIDE [Concomitant]
  5. SALBUTAMOL [Concomitant]
  6. OXYGEN [Concomitant]

REACTIONS (2)
  - Pneumonia [Fatal]
  - Leukocytosis [Fatal]
